FAERS Safety Report 25503934 (Version 1)
Quarter: 2025Q3

REPORT INFORMATION
  Report Type: Spontaneous
  Country: JP (occurrence: JP)
  Receive Date: 20250702
  Receipt Date: 20250702
  Transmission Date: 20251021
  Serious: Yes (Other)
  Sender: RANBAXY
  Company Number: JP-SUN PHARMACEUTICAL INDUSTRIES LTD-2025RR-514819

PATIENT
  Age: 64 Year
  Sex: Female

DRUGS (5)
  1. CIPROFLOXACIN [Suspect]
     Active Substance: CIPROFLOXACIN
     Indication: Atypical mycobacterial infection
     Dosage: 400 MILLIGRAM, BID
     Route: 042
  2. MOXIFLOXACIN [Suspect]
     Active Substance: MOXIFLOXACIN
     Indication: Atypical mycobacterial infection
     Dosage: 400 MILLIGRAM, DAILY
     Route: 048
  3. COTRIMOXAZOLE [Suspect]
     Active Substance: SULFAMETHOXAZOLE\TRIMETHOPRIM
     Indication: Atypical mycobacterial infection
     Route: 048
  4. IMIPENEM AND CILASTATIN [Concomitant]
     Active Substance: CILASTATIN SODIUM\IMIPENEM
     Indication: Atypical mycobacterial infection
     Dosage: 0.5 GRAM, TID
     Route: 042
  5. LINEZOLID [Concomitant]
     Active Substance: LINEZOLID
     Indication: Atypical mycobacterial infection
     Dosage: 300 MILLIGRAM, BID
     Route: 042

REACTIONS (2)
  - Rash [Unknown]
  - Renal disorder [Unknown]
